FAERS Safety Report 9719620 (Version 2)
Quarter: 2014Q1

REPORT INFORMATION
  Report Type: Report from Study
  Country: JP (occurrence: JP)
  Receive Date: 20131128
  Receipt Date: 20140110
  Transmission Date: 20141002
  Serious: Yes (Death)
  Sender: FDA-Public Use
  Company Number: JP-ROCHE-1307700

PATIENT
  Age: 65 Year
  Sex: Male
  Weight: 54 kg

DRUGS (7)
  1. METHOXY POLYETHYLENE GLYCOL-EPOETIN BETA [Suspect]
     Indication: NEPHROGENIC ANAEMIA
     Route: 058
     Dates: start: 20120629
  2. METHOXY POLYETHYLENE GLYCOL-EPOETIN BETA [Suspect]
     Indication: NEPHROGENIC ANAEMIA
     Route: 042
     Dates: start: 20130107, end: 20130314
  3. NORVASC [Concomitant]
     Route: 048
     Dates: end: 20130106
  4. KREMEZIN [Concomitant]
     Indication: DIABETIC NEPHROPATHY
     Route: 048
     Dates: end: 20130106
  5. GLUFAST [Concomitant]
     Route: 048
     Dates: end: 20130106
  6. ACTOS [Concomitant]
     Route: 048
     Dates: end: 20130106
  7. SEIBULE [Concomitant]
     Route: 048
     Dates: end: 20130106

REACTIONS (1)
  - Pneumonia [Fatal]
